FAERS Safety Report 18254160 (Version 2)
Quarter: 2020Q3

REPORT INFORMATION
  Report Type: Spontaneous
  Country: AU (occurrence: AU)
  Receive Date: 20200910
  Receipt Date: 20200918
  Transmission Date: 20201103
  Serious: Yes (Hospitalization, Disabling, Other)
  Sender: FDA-Public Use
  Company Number: AU-BAUSCH-BL-2020-025417

PATIENT
  Sex: Male

DRUGS (7)
  1. PREDNISOLONE. [Suspect]
     Active Substance: PREDNISOLONE
     Dosage: ATTEMPT TO WEAN PREDNISOLONE
     Route: 048
     Dates: start: 2016
  2. MYCOPHENOLATE MOFETIL. [Suspect]
     Active Substance: MYCOPHENOLATE MOFETIL
     Indication: SARCOIDOSIS
     Route: 065
  3. METHOTREXATE. [Suspect]
     Active Substance: METHOTREXATE
     Indication: PRODUCT USED FOR UNKNOWN INDICATION
     Route: 065
  4. PREDNISOLONE. [Suspect]
     Active Substance: PREDNISOLONE
     Indication: SARCOIDOSIS
     Route: 048
  5. PREDNISOLONE. [Suspect]
     Active Substance: PREDNISOLONE
     Dosage: HIGH DOSE
     Route: 048
  6. MYCOPHENOLATE MOFETIL. [Suspect]
     Active Substance: MYCOPHENOLATE MOFETIL
     Route: 065
  7. INFLIXIMAB [Concomitant]
     Active Substance: INFLIXIMAB
     Indication: PRODUCT USED FOR UNKNOWN INDICATION

REACTIONS (18)
  - Obesity [Unknown]
  - Sleep apnoea syndrome [Unknown]
  - Urinary tract infection [Unknown]
  - Depression [Unknown]
  - Urinary incontinence [Unknown]
  - Type 2 diabetes mellitus [Unknown]
  - Intentional product use issue [Unknown]
  - Fall [Unknown]
  - Sarcoidosis [Unknown]
  - Urosepsis [Unknown]
  - Disease recurrence [Unknown]
  - Loss of personal independence in daily activities [Unknown]
  - Osteoporosis [Unknown]
  - Cataract [Unknown]
  - Off label use [Unknown]
  - Ankle fracture [Unknown]
  - Myopathy [Unknown]
  - Infection [Unknown]
